FAERS Safety Report 4879823-0 (Version None)
Quarter: 2006Q1

REPORT INFORMATION
  Report Type: 
  Country: None (occurrence: None)
  Receive Date: 20060113
  Receipt Date: 20060110
  Transmission Date: 20060701
  Serious: Yes (Hospitalization)
  Sender: FDA-Public Use
  Company Number: FR-JNJFOC-20051206016

PATIENT
  Age: 33 Year
  Sex: Male

DRUGS (1)
  1. NIZORAL [Suspect]
     Indication: DRUG USE FOR UNKNOWN INDICATION
     Route: 048
     Dates: start: 20051018, end: 20051028

REACTIONS (2)
  - ANGIONEUROTIC OEDEMA [None]
  - URTICARIA [None]
